FAERS Safety Report 15793440 (Version 10)
Quarter: 2020Q1

REPORT INFORMATION
  Report Type: Spontaneous
  Country: US (occurrence: US)
  Receive Date: 20190107
  Receipt Date: 20200103
  Transmission Date: 20200409
  Serious: No
  Sender: FDA-Public Use
  Company Number: US-PFIZER INC-2018362445

PATIENT
  Age: 73 Year
  Sex: Male
  Weight: 86 kg

DRUGS (4)
  1. GENOTROPIN MQ [Suspect]
     Active Substance: SOMATROPIN
     Indication: BRAIN OEDEMA
     Dosage: 0.4 MG, DAILY
     Dates: start: 201011
  2. GENOTROPIN MQ [Suspect]
     Active Substance: SOMATROPIN
     Dosage: 0.4 MG, DAILY
     Route: 058
     Dates: start: 2018
  3. GENOTROPIN MQ [Suspect]
     Active Substance: SOMATROPIN
     Indication: LYMPHADENOPATHY
     Dosage: 0.4 MG, DAILY
     Dates: start: 20101204
  4. GENOTROPIN MQ [Suspect]
     Active Substance: SOMATROPIN
     Dosage: 0.4 MG, DAILY
     Dates: start: 201901

REACTIONS (11)
  - Blood potassium increased [Unknown]
  - Lymphocyte count decreased [Unknown]
  - Eosinophil count increased [Unknown]
  - Neuropsychiatric syndrome [Unknown]
  - Feeling abnormal [Unknown]
  - Blood bicarbonate increased [Unknown]
  - Memory impairment [Unknown]
  - Product use in unapproved indication [Unknown]
  - Blood testosterone increased [Unknown]
  - Blood glucose increased [Unknown]
  - Off label use [Unknown]

NARRATIVE: CASE EVENT DATE: 20170829
